FAERS Safety Report 19003221 (Version 2)
Quarter: 2021Q4

REPORT INFORMATION
  Report Type: Spontaneous
  Country: GB (occurrence: GB)
  Receive Date: 20210312
  Receipt Date: 20211025
  Transmission Date: 20220303
  Serious: Yes (Other)
  Sender: FDA-Public Use
  Company Number: None

PATIENT
  Age: 19 Year
  Sex: Female
  Weight: 57 kg

DRUGS (3)
  1. CLARITHROMYCIN [Suspect]
     Active Substance: CLARITHROMYCIN
     Indication: Pharyngitis
     Dosage: 500 MILLIGRAM
     Route: 048
     Dates: start: 20210227
  2. CLARITHROMYCIN [Suspect]
     Active Substance: CLARITHROMYCIN
     Indication: Ill-defined disorder
     Dosage: 500 MILLIGRAM
     Route: 048
     Dates: start: 20210227
  3. CITALOPRAM HYDROBROMIDE [Concomitant]
     Active Substance: CITALOPRAM HYDROBROMIDE
     Indication: Ill-defined disorder
     Dosage: UNK

REACTIONS (2)
  - Increased appetite [Not Recovered/Not Resolved]
  - Appetite disorder [Unknown]

NARRATIVE: CASE EVENT DATE: 20210227
